FAERS Safety Report 6680850-1 (Version None)
Quarter: 2010Q2

REPORT INFORMATION
  Report Type: 
  Country: None (occurrence: None)
  Receive Date: 20100414
  Receipt Date: 20100408
  Transmission Date: 20101027
  Serious: Yes (Other)
  Sender: FDA-Public Use
  Company Number: JP-ELI_LILLY_AND_COMPANY-JP201003007987

PATIENT
  Age: 40 Year

DRUGS (2)
  1. GEMZAR [Suspect]
     Indication: BILE DUCT CANCER
     Dosage: 1000 MG/M2, OTHER
     Route: 042
  2. TS 1 [Concomitant]
     Indication: BILE DUCT CANCER
     Dosage: 40 MG/M2, 2/D
     Route: 048

REACTIONS (1)
  - CHOLANGITIS [None]
